FAERS Safety Report 7636519-X (Version None)
Quarter: 2011Q3

REPORT INFORMATION
  Report Type: 
  Country: None (occurrence: None)
  Receive Date: 20110726
  Receipt Date: 20110718
  Transmission Date: 20111222
  Serious: Yes (Other)
  Sender: FDA-Public Use
  Company Number: US-MERCK-1107USA02315

PATIENT
  Age: 80 Year
  Sex: Female

DRUGS (7)
  1. JANUVIA [Suspect]
     Indication: DIABETES MELLITUS
     Route: 048
     Dates: start: 20040101
  2. ARMOUR THYROID TABLETS [Concomitant]
     Route: 065
  3. JANUVIA [Suspect]
     Route: 048
  4. METOPROLOL TARTRATE [Concomitant]
     Route: 065
  5. ACTOS [Concomitant]
     Route: 065
  6. VITAMIN D (UNSPECIFIED) [Concomitant]
     Route: 065
  7. CALCIUM (UNSPECIFIED) [Concomitant]
     Route: 065

REACTIONS (4)
  - FEMUR FRACTURE [None]
  - BLOOD GLUCOSE INCREASED [None]
  - ARTHRALGIA [None]
  - JOINT SWELLING [None]
